FAERS Safety Report 7149512-0 (Version None)
Quarter: 2010Q4

REPORT INFORMATION
  Report Type: 
  Country: None (occurrence: None)
  Receive Date: 20101209
  Receipt Date: 20101125
  Transmission Date: 20110411
  Serious: Yes (Life-Threatening)
  Sender: FDA-Public Use
  Company Number: AU-GENENTECH-310439

PATIENT
  Sex: Male

DRUGS (4)
  1. NUTROPIN [Suspect]
     Indication: GROWTH HORMONE DEFICIENCY
     Dosage: 6 MG, 1/WEEK
     Route: 058
     Dates: start: 20091008, end: 20100723
  2. T4 [Concomitant]
     Indication: HYPOTHYROIDISM
  3. HYDROCORTISONE ACETATE [Concomitant]
     Indication: BLOOD CORTISOL DECREASED
  4. INSULIN [Concomitant]
     Indication: DIABETES MELLITUS

REACTIONS (1)
  - PINEAL GERMINOMA [None]
